FAERS Safety Report 17468667 (Version 1)
Quarter: 2020Q1

REPORT INFORMATION
  Report Type: Spontaneous
  Country: NL (occurrence: NL)
  Receive Date: 20200227
  Receipt Date: 20200227
  Transmission Date: 20200409
  Serious: Yes (Other)
  Sender: FDA-Public Use
  Company Number: NL-SA-2020SA050575

PATIENT
  Sex: Male

DRUGS (2)
  1. HUMIRA [Concomitant]
     Active Substance: ADALIMUMAB
     Dosage: INJECTIEVLOEISTOF, 100 MG/ML (MILLIGRAM PER MILLILITER)
  2. DUPIXENT [Suspect]
     Active Substance: DUPILUMAB
     Indication: ECZEMA
     Dosage: 1 DF, QOW (INJECTION LIQUID, 150 MG / ML (MILLIGRAMS PER MILLILITER), ONCE EVERY 2 WEEKS)
     Dates: start: 20200115, end: 20200129

REACTIONS (1)
  - Iridocyclitis [Recovering/Resolving]
